FAERS Safety Report 4297767-2 (Version None)
Quarter: 2004Q1

REPORT INFORMATION
  Report Type: 
  Country: None (occurrence: None)
  Receive Date: 20040126
  Receipt Date: 20031106
  Transmission Date: 20041129
  Serious: No
  Sender: FDA-Public Use
  Company Number: USA031151876

PATIENT
  Age: 12 Year
  Sex: Male
  Weight: 37 kg

DRUGS (5)
  1. STRATTERA [Suspect]
     Indication: ATTENTION DEFICIT/HYPERACTIVITY DISORDER
     Dosage: 50 MG/IN THE MORNING
     Dates: start: 20031105
  2. ZYPREXA [Concomitant]
  3. FOCALIN (FOCALIN) [Concomitant]
  4. DEPAKOTE [Concomitant]
  5. TRAZODONE HCL [Concomitant]

REACTIONS (3)
  - DRUG INEFFECTIVE [None]
  - SOMNOLENCE [None]
  - THIRST [None]
